FAERS Safety Report 7889607-7 (Version None)
Quarter: 2011Q4

REPORT INFORMATION
  Report Type: 
  Country: None (occurrence: None)
  Receive Date: 20111103
  Receipt Date: 20110808
  Transmission Date: 20120403
  Serious: No
  Sender: FDA-Public Use
  Company Number: US-BRISTOL-MYERS SQUIBB COMPANY-15953805

PATIENT

DRUGS (1)
  1. KENALOG-40 [Suspect]
     Dosage: KENALOG 40 RECENT INF:AUG2011
     Dates: start: 20110301

REACTIONS (1)
  - INCORRECT ROUTE OF DRUG ADMINISTRATION [None]
